FAERS Safety Report 5712889-4 (Version None)
Quarter: 2008Q2

REPORT INFORMATION
  Report Type: 
  Country: None (occurrence: None)
  Receive Date: 20080422
  Receipt Date: 20080416
  Transmission Date: 20081010
  Serious: Yes (Life-Threatening, Hospitalization)
  Sender: FDA-Public Use
  Company Number: B0517643A

PATIENT
  Age: 35 Year
  Sex: Female

DRUGS (3)
  1. ALBENDAZOLE [Suspect]
     Indication: FILARIASIS LYMPHATIC
     Dosage: 1TAB SINGLE DOSE
     Route: 048
     Dates: start: 20070628, end: 20070628
  2. DIETHYLCARBAMAZINE CITRATE [Suspect]
     Indication: FILARIASIS LYMPHATIC
     Dosage: 3TAB SINGLE DOSE
     Route: 048
     Dates: start: 20070628, end: 20070628
  3. NO CONCURRENT MEDICATION [Concomitant]

REACTIONS (6)
  - ABDOMINAL PAIN [None]
  - CHILLS [None]
  - GASTROENTERITIS [None]
  - NASOPHARYNGITIS [None]
  - VAGINAL HAEMORRHAGE [None]
  - VOMITING [None]
